FAERS Safety Report 16365801 (Version 2)
Quarter: 2019Q3

REPORT INFORMATION
  Report Type: Spontaneous
  Country: US (occurrence: US)
  Receive Date: 20190529
  Receipt Date: 20190723
  Transmission Date: 20191004
  Serious: No
  Sender: FDA-Public Use
  Company Number: US-ASTRAZENECA-2019SE68521

PATIENT
  Sex: Female

DRUGS (1)
  1. SYMBICORT [Suspect]
     Active Substance: BUDESONIDE\FORMOTEROL FUMARATE DIHYDRATE
     Dosage: 160/4.5 MCG, 1 PUFF BID
     Route: 055
     Dates: start: 2016

REACTIONS (4)
  - Feeling abnormal [Unknown]
  - Device failure [Unknown]
  - Incorrect dose administered [Unknown]
  - Off label use [Unknown]
